FAERS Safety Report 9304096 (Version 1)
Quarter: 2013Q2

REPORT INFORMATION
  Report Type: Spontaneous
  Country: US (occurrence: US)
  Receive Date: 20130522
  Receipt Date: 20130522
  Transmission Date: 20140414
  Serious: Yes (Other)
  Sender: FDA-Public Use
  Company Number: US-PFIZER INC-2013152523

PATIENT
  Age: 32 Year
  Sex: Male
  Weight: 89.8 kg

DRUGS (3)
  1. BENEFIX [Suspect]
     Indication: HAEMOPHILIA
     Dosage: 1000 IU, UNK
  2. BENEFIX [Suspect]
     Dosage: 2000 IU, AS NEEDED
  3. LOSARTAN [Concomitant]
     Dosage: UNK

REACTIONS (3)
  - Haemorrhage [Unknown]
  - Haemarthrosis [Unknown]
  - Drug ineffective [Unknown]
